FAERS Safety Report 25226467 (Version 3)
Quarter: 2025Q3

REPORT INFORMATION
  Report Type: Report from Study
  Country: CA (occurrence: CA)
  Receive Date: 20250422
  Receipt Date: 20250925
  Transmission Date: 20251021
  Serious: Yes (Other)
  Sender: SANDOZ
  Company Number: CA-SANDOZ-SDZ2025CA020160

PATIENT
  Age: 69 Year
  Sex: Male

DRUGS (2)
  1. HYRIMOZ [Suspect]
     Active Substance: ADALIMUMAB-ADAZ
     Indication: Uveitis
     Dosage: 40 MG EVERY OTHER WEEK;NULL
     Route: 058
     Dates: start: 20240117
  2. METHOTREXATE [Suspect]
     Active Substance: METHOTREXATE
     Indication: Product used for unknown indication
     Route: 065

REACTIONS (6)
  - Surgery [Unknown]
  - Cholelithiasis [Unknown]
  - Bile duct stone [Recovering/Resolving]
  - Infection [Not Recovered/Not Resolved]
  - Intraocular pressure increased [Unknown]
  - Liver function test decreased [Unknown]

NARRATIVE: CASE EVENT DATE: 20240801
